FAERS Safety Report 6492300-9 (Version None)
Quarter: 2009Q4

REPORT INFORMATION
  Report Type: 
  Country: None (occurrence: None)
  Receive Date: 20091214
  Receipt Date: 20091203
  Transmission Date: 20100525
  Serious: Yes (Other)
  Sender: FDA-Public Use
  Company Number: MX-SANOFI-AVENTIS-2009SA006654

PATIENT
  Age: 33 Year
  Sex: Female
  Weight: 101 kg

DRUGS (6)
  1. ARAVA [Suspect]
     Indication: RHEUMATOID ARTHRITIS
     Dosage: UNKNOWN
     Route: 048
     Dates: start: 20040301, end: 20060101
  2. ARAVA [Suspect]
     Route: 048
     Dates: start: 20060201, end: 20090301
  3. LEDERTREXATE /NET/ [Concomitant]
     Indication: RHEUMATOID ARTHRITIS
     Dosage: 4 TABLETS A WEEK
     Route: 048
     Dates: start: 20050101, end: 20060101
  4. LEDERTREXATE /NET/ [Concomitant]
     Dosage: 4 TABLETS A WEEK
     Route: 048
     Dates: start: 20060201, end: 20090301
  5. METICORTEN [Concomitant]
     Route: 048
     Dates: start: 20070101
  6. YASMIN [Concomitant]
     Indication: CONTRACEPTION
     Dosage: 1 TABLET DAILY 21 DAYS/MONTH
     Route: 048
     Dates: start: 19990101, end: 20090301

REACTIONS (2)
  - ABORTION SPONTANEOUS [None]
  - DRUG EXPOSURE DURING PREGNANCY [None]
